FAERS Safety Report 25380130 (Version 1)
Quarter: 2025Q2

REPORT INFORMATION
  Report Type: Spontaneous
  Country: US (occurrence: US)
  Receive Date: 20250530
  Receipt Date: 20250530
  Transmission Date: 20250717
  Serious: No
  Sender: EISAI
  Company Number: US-Eisai-EC-2025-189407

PATIENT
  Sex: Female

DRUGS (3)
  1. LENVIMA [Suspect]
     Active Substance: LENVATINIB
     Indication: Non-clear cell renal cell carcinoma
  2. LENVIMA [Suspect]
     Active Substance: LENVATINIB
  3. KEYTRUDA [Suspect]
     Active Substance: PEMBROLIZUMAB
     Indication: Non-clear cell renal cell carcinoma

REACTIONS (3)
  - Mucosal inflammation [Unknown]
  - Decreased appetite [Unknown]
  - Malignant neoplasm progression [Unknown]
